FAERS Safety Report 6526430-X (Version None)
Quarter: 2009Q4

REPORT INFORMATION
  Report Type: 
  Country: None (occurrence: None)
  Receive Date: 20091223
  Receipt Date: 20091217
  Transmission Date: 20100525
  Serious: Yes (Death, Hospitalization)
  Sender: FDA-Public Use
  Company Number: A-US2009-27100

PATIENT
  Age: 67 Year
  Sex: Female

DRUGS (1)
  1. TRACLEER [Suspect]
     Indication: PULMONARY ARTERIAL HYPERTENSION
     Dosage: ORAL
     Route: 048
     Dates: start: 20090724, end: 20091006

REACTIONS (4)
  - ANAEMIA [None]
  - CELLULITIS [None]
  - OEDEMA PERIPHERAL [None]
  - RECTAL HAEMORRHAGE [None]
